FAERS Safety Report 10792268 (Version 1)
Quarter: 2015Q1

REPORT INFORMATION
  Report Type: Spontaneous
  Country: PE (occurrence: PE)
  Receive Date: 20150213
  Receipt Date: 20150213
  Transmission Date: 20150721
  Serious: Yes (Death)
  Sender: FDA-Public Use
  Company Number: PE-MERCK-1502PER004792

PATIENT
  Age: 73 Year
  Sex: Female

DRUGS (1)
  1. JANUVIA [Suspect]
     Active Substance: SITAGLIPTIN PHOSPHATE
     Dosage: UNK
     Dates: start: 20141114, end: 20150125

REACTIONS (1)
  - Death [Fatal]

NARRATIVE: CASE EVENT DATE: 201501
